FAERS Safety Report 16321468 (Version 1)
Quarter: 2019Q2

REPORT INFORMATION
  Report Type: Spontaneous
  Country: GB (occurrence: GB)
  Receive Date: 20190516
  Receipt Date: 20190516
  Transmission Date: 20190711
  Serious: Yes (Hospitalization, Congenital Anomaly)
  Sender: FDA-Public Use
  Company Number: GB-TEVA-2019-GB-1050392

PATIENT
  Age: 2 Month
  Sex: Female

DRUGS (1)
  1. RANITIDINE. [Suspect]
     Active Substance: RANITIDINE
     Dosage: 75MG/5ML
     Route: 048

REACTIONS (6)
  - Sickle cell trait [Unknown]
  - Hypopnoea [Unknown]
  - Restlessness [Unknown]
  - Vomiting [Unknown]
  - Prescribed overdose [Unknown]
  - Pain [Unknown]
